FAERS Safety Report 11390618 (Version 1)
Quarter: 2015Q3

REPORT INFORMATION
  Report Type: Spontaneous
  Country: JP (occurrence: None)
  Receive Date: 20150813
  Receipt Date: 20150813
  Transmission Date: 20151125
  Serious: Yes (Hospitalization)
  Sender: FDA-Public Use
  Company Number: 2015RR-101329

PATIENT
  Age: 47 Year
  Sex: Male

DRUGS (9)
  1. PHENOBARBITAL (PHENOBARBITAL) UNKNOWN) [Suspect]
     Active Substance: PHENOBARBITAL
     Indication: PRODUCT USED FOR UNKNOWN INDICATION
  2. CHLORPROMAZINE (CHLORPROMAZINE) [Suspect]
     Active Substance: CHLORPROMAZINE
     Indication: SCHIZOPHRENIA
  3. MIANSERINE (MIANSERIN) UNKNOWN [Suspect]
     Active Substance: MIANSERIN HYDROCHLORIDE
     Indication: PRODUCT USED FOR UNKNOWN INDICATION
  4. RISPERIDONE (RISPERIDONE) UNKNOWN [Suspect]
     Active Substance: RISPERIDONE
     Indication: SCHIZOPHRENIA
  5. LEVOMEPROMAZINE (LEVOMEPROMAZINE) UNKNOWN [Suspect]
     Active Substance: LEVOMEPROMAZINE
     Indication: SCHIZOPHRENIA
  6. BIPERIDEN (BIPERIDEN) (BIPERIDIEN) [Suspect]
     Active Substance: BIPERIDEN
     Indication: PRODUCT USED FOR UNKNOWN INDICATION
  7. NITRAZEPAM (NITRAZEPAM) [Suspect]
     Active Substance: NITRAZEPAM
     Indication: PRODUCT USED FOR UNKNOWN INDICATION
  8. FLUNITRAZEPAM (FLUNITAZEPAM) [Suspect]
     Active Substance: FLUNITRAZEPAM
     Indication: PRODUCT USED FOR UNKNOWN INDICATION
  9. PROMETHAZINE (PROMETHAZINE) UNKNOWN [Suspect]
     Active Substance: PROMETHAZINE HYDROCHLORIDE
     Indication: PRODUCT USED FOR UNKNOWN INDICATION

REACTIONS (6)
  - Neuroleptic malignant syndrome [None]
  - Incorrect dose administered [None]
  - Hyperosmolar hyperglycaemic state [None]
  - Diabetes mellitus [None]
  - Fall [None]
  - Overdose [None]
